FAERS Safety Report 9375027 (Version 2)
Quarter: 2013Q3

REPORT INFORMATION
  Report Type: Report from Study
  Country: US (occurrence: US)
  Receive Date: 20130628
  Receipt Date: 20130821
  Transmission Date: 20140515
  Serious: Yes (Other)
  Sender: FDA-Public Use
  Company Number: US-PURDUE-USA-2013-0103893

PATIENT
  Sex: Female
  Weight: 39.46 kg

DRUGS (2)
  1. OXYCONTIN TABLETS [Suspect]
     Indication: SPINAL PAIN
     Dosage: 40 MG, TID
     Route: 048
     Dates: start: 1994
  2. OXYCONTIN TABLETS [Suspect]
     Dosage: 80 MG, TID
     Route: 048
     Dates: start: 1994

REACTIONS (1)
  - Inflammatory carcinoma of the breast [Not Recovered/Not Resolved]
